FAERS Safety Report 9711680 (Version 2)
Quarter: 2013Q4

REPORT INFORMATION
  Report Type: Spontaneous
  Country: US (occurrence: US)
  Receive Date: 20131126
  Receipt Date: 20131126
  Transmission Date: 20140711
  Serious: No
  Sender: FDA-Public Use
  Company Number: US-BRISTOL-MYERS SQUIBB COMPANY-19095074

PATIENT
  Age: 48 Year
  Sex: Male
  Weight: 92.97 kg

DRUGS (2)
  1. BYDUREON [Suspect]
     Indication: TYPE 2 DIABETES MELLITUS
     Dosage: 73229, EXP:FEB2016
     Route: 058
     Dates: start: 20130709
  2. METFORMIN HCL [Suspect]

REACTIONS (6)
  - Injection site haemorrhage [Recovered/Resolved]
  - Injection site pain [Recovered/Resolved]
  - Hunger [Unknown]
  - Weight decreased [Unknown]
  - Injection site nodule [Recovered/Resolved]
  - Drug ineffective [Unknown]
